FAERS Safety Report 16234969 (Version 1)
Quarter: 2019Q2

REPORT INFORMATION
  Report Type: Report from Study
  Country: US (occurrence: US)
  Receive Date: 20190424
  Receipt Date: 20190424
  Transmission Date: 20190711
  Serious: Yes (Death)
  Sender: FDA-Public Use
  Company Number: US-ACTELION-A-NJ2018-174978

PATIENT
  Age: 74 Year
  Sex: Male
  Weight: 139.68 kg

DRUGS (3)
  1. TRACLEER [Suspect]
     Active Substance: BOSENTAN
     Indication: PULMONARY ARTERIAL HYPERTENSION
     Dosage: 125 MG, BID
     Route: 048
  2. OXYGEN. [Concomitant]
     Active Substance: OXYGEN
  3. ELIQUIS [Concomitant]
     Active Substance: APIXABAN

REACTIONS (7)
  - Death [Fatal]
  - Pulmonary hypertension [Unknown]
  - Chest pain [Unknown]
  - Dyspnoea exertional [Unknown]
  - Product dose omission [Unknown]
  - Dyspnoea [Unknown]
  - Oxygen therapy [Unknown]

NARRATIVE: CASE EVENT DATE: 201901
